FAERS Safety Report 15524429 (Version 1)
Quarter: 2018Q4

REPORT INFORMATION
  Report Type: Spontaneous
  Country: US (occurrence: US)
  Receive Date: 20181018
  Receipt Date: 20181018
  Transmission Date: 20190205
  Serious: No
  Sender: FDA-Public Use
  Company Number: US-PFIZER INC-2018255185

PATIENT
  Age: 71 Year
  Sex: Male
  Weight: 82.54 kg

DRUGS (3)
  1. LYRICA [Suspect]
     Active Substance: PREGABALIN
     Indication: RADICULOPATHY
     Dosage: 1 DF, 2X/DAY
     Route: 048
  2. LYRICA [Suspect]
     Active Substance: PREGABALIN
     Indication: PAIN IN EXTREMITY
     Dosage: 150 MG, 1X/DAY
     Route: 048
     Dates: start: 2018
  3. LYRICA [Suspect]
     Active Substance: PREGABALIN
     Indication: BACK PAIN
     Dosage: 75 MG, 1X/DAY
     Route: 048
     Dates: start: 2018

REACTIONS (1)
  - Somnolence [Recovered/Resolved]
